FAERS Safety Report 25165297 (Version 2)
Quarter: 2025Q2

REPORT INFORMATION
  Report Type: Report from Study
  Country: US (occurrence: US)
  Receive Date: 20250407
  Receipt Date: 20250414
  Transmission Date: 20250716
  Serious: Yes (Other)
  Sender: ABBVIE
  Company Number: US-ABBVIE-6210835

PATIENT
  Age: 74 Year
  Sex: Female

DRUGS (1)
  1. RINVOQ [Suspect]
     Active Substance: UPADACITINIB
     Indication: Rheumatoid arthritis
     Dosage: FORM STRENGTH:15MG
     Route: 048
     Dates: start: 2022

REACTIONS (5)
  - Osteomyelitis [Recovered/Resolved]
  - Foot deformity [Recovered/Resolved]
  - Toe amputation [Recovered/Resolved]
  - Bone disorder [Unknown]
  - Ligament rupture [Unknown]

NARRATIVE: CASE EVENT DATE: 20241128
